FAERS Safety Report 8213570 (Version 2)
Quarter: 2012Q4

REPORT INFORMATION
  Report Type: 
  Country: US (occurrence: US)
  Receive Date: 20111030
  Receipt Date: 20121023
  Transmission Date: 20130627
  Serious: No
  Sender: FDA-Public Use
  Company Number: US-AMGEN-USASP2011021854

PATIENT
  Age: 65 Year
  Sex: Female

DRUGS (9)
  1. ENBREL [Suspect]
     Indication: PSORIASIS
     Dosage: 50 mg, 2 times/wk
     Route: 058
     Dates: start: 20110406, end: 20110414
  2. PLAVIX [Concomitant]
  3. DOXEPIN [Concomitant]
  4. ZOLPIDEM [Concomitant]
  5. XANAX [Concomitant]
  6. TENORMIN [Concomitant]
  7. AMLODIPINE [Concomitant]
  8. OXYCONTIN [Concomitant]
  9. ASPIRIN [Concomitant]

REACTIONS (6)
  - Abnormal sleep-related event [Unknown]
  - Tremor [Unknown]
  - Dizziness [Unknown]
  - Vision blurred [Recovering/Resolving]
  - Nausea [Recovering/Resolving]
  - Fatigue [Recovering/Resolving]
